FAERS Safety Report 23040198 (Version 1)
Quarter: 2023Q4

REPORT INFORMATION
  Report Type: Spontaneous
  Country: JP (occurrence: None)
  Receive Date: 20231006
  Receipt Date: 20231006
  Transmission Date: 20240110
  Serious: Yes (Life-Threatening, Hospitalization, Other)
  Sender: FDA-Public Use
  Company Number: 2023A227606

PATIENT
  Age: 29 Year
  Sex: Male
  Weight: 68.8 kg

DRUGS (8)
  1. QUETIAPINE [Suspect]
     Active Substance: QUETIAPINE
     Indication: Depression
     Dosage: UNK UNK, UNKNOWN FREQ.
     Route: 048
  2. QUETIAPINE [Suspect]
     Active Substance: QUETIAPINE
     Indication: Depression
     Dosage: 1.8 G
     Route: 048
  3. ZOLPIDEM TARTRATE [Suspect]
     Active Substance: ZOLPIDEM TARTRATE
     Indication: Depression
     Dosage: UNK UNK, UNKNOWN FREQ.
  4. SULPIRIDE [Suspect]
     Active Substance: SULPIRIDE
     Indication: Depression
     Dosage: UNK UNK, UNKNOWN FREQ.
     Route: 048
  5. NAUZELIN [Suspect]
     Active Substance: DOMPERIDONE
     Indication: Depression
     Dosage: UNK UNK, UNKNOWN FREQ.
  6. DULOXETINE [Suspect]
     Active Substance: DULOXETINE
     Indication: Depression
     Dosage: UNK UNK, UNKNOWN FREQ.
  7. PENTOBARBITAL CALCIUM [Suspect]
     Active Substance: PENTOBARBITAL CALCIUM
     Indication: Depression
     Dosage: UNK UNK, UNKNOWN FREQ.
  8. PENTOBARBITAL CALCIUM [Suspect]
     Active Substance: PENTOBARBITAL CALCIUM
     Indication: Depression
     Dosage: 1.3 G

REACTIONS (3)
  - Altered state of consciousness [Recovering/Resolving]
  - Overdose [Unknown]
  - Off label use [Unknown]
